FAERS Safety Report 9066392 (Version 1)
Quarter: 2013Q1

REPORT INFORMATION
  Report Type: Report from Study
  Country: US (occurrence: US)
  Receive Date: 20130131
  Receipt Date: 20130131
  Transmission Date: 20140127
  Serious: No
  Sender: FDA-Public Use
  Company Number: US-ABBOTT-12P-163-1016671-00

PATIENT
  Age: 62 Year
  Sex: Female

DRUGS (14)
  1. HUMIRA [Suspect]
     Indication: RHEUMATOID ARTHRITIS
     Dates: start: 20121129
  2. MIRAPEX [Concomitant]
  3. NORVASC [Concomitant]
  4. SIMVASTATIN [Concomitant]
  5. DIAZIDE [Concomitant]
  6. LEVOTHYROXINE [Concomitant]
  7. DIOVAN [Concomitant]
  8. CYMBALTA [Concomitant]
  9. PRILOSEC [Concomitant]
     Dosage: AT HS
  10. FLEXERIL [Concomitant]
     Dosage: AT HS
  11. TRAZODONE [Concomitant]
     Dosage: AT HS
  12. FOLIC ACID [Concomitant]
  13. CALCIUM [Concomitant]
  14. KLONOPIN [Concomitant]
     Indication: ANXIETY

REACTIONS (6)
  - Device malfunction [Recovered/Resolved]
  - Incorrect dose administered [Recovered/Resolved]
  - Abdominal pain [Unknown]
  - Asthenia [Unknown]
  - Nausea [Unknown]
  - Dizziness [Unknown]
